FAERS Safety Report 16836698 (Version 2)
Quarter: 2020Q1

REPORT INFORMATION
  Report Type: Report from Study
  Country: IL (occurrence: IL)
  Receive Date: 20190922
  Receipt Date: 20200129
  Transmission Date: 20200409
  Serious: Yes (Other)
  Sender: FDA-Public Use
  Company Number: IL-TEVA-2019-IL-1113401

PATIENT
  Sex: Female
  Weight: 3.16 kg

DRUGS (2)
  1. PREZCOBIX [Suspect]
     Active Substance: COBICISTAT\DARUNAVIR ETHANOLATE
     Dosage: TABLET/CAPSULE
     Route: 064
  2. ABACAVIR+LAMIVUDINE GENERIC-TEVA [Suspect]
     Active Substance: ABACAVIR\LAMIVUDINE
     Dosage: TABLET/CAPSULE
     Route: 064

REACTIONS (2)
  - Ultrasound antenatal screen abnormal [Recovered/Resolved]
  - Foetal exposure during pregnancy [Unknown]
